FAERS Safety Report 14169629 (Version 1)
Quarter: 2017Q4

REPORT INFORMATION
  Report Type: Spontaneous
  Country: JP (occurrence: JP)
  Receive Date: 20171108
  Receipt Date: 20171108
  Transmission Date: 20180321
  Serious: Yes (Other)
  Sender: FDA-Public Use
  Company Number: JP-TEVA-822129ROM

PATIENT
  Age: 81 Year
  Sex: Female

DRUGS (1)
  1. RISEDRONIC ACID [Suspect]
     Active Substance: RISEDRONIC ACID
     Indication: PRODUCT USED FOR UNKNOWN INDICATION
     Dosage: 75 MILLIGRAM DAILY;
     Route: 065
     Dates: start: 20170915, end: 20170916

REACTIONS (3)
  - Arthralgia [Unknown]
  - Pyrexia [Unknown]
  - Melaena [Unknown]

NARRATIVE: CASE EVENT DATE: 20170916
